FAERS Safety Report 5158827-7 (Version None)
Quarter: 2006Q4

REPORT INFORMATION
  Report Type: 
  Country: None (occurrence: None)
  Receive Date: 20061128
  Receipt Date: 20061116
  Transmission Date: 20070319
  Serious: Yes (Other)
  Sender: FDA-Public Use
  Company Number: JP-SANOFI-SYNTHELABO-A01200610146

PATIENT
  Age: 80 Year
  Sex: Female

DRUGS (3)
  1. FLUOROURACIL [Concomitant]
     Dosage: 400 MG/M2 IV BOLUS FOLLOWED BY 600 MG/M2 IV INFUSION ON D1+2
     Dates: start: 20060801, end: 20060801
  2. LEUCOVORIN CALCIUM [Concomitant]
     Route: 042
     Dates: start: 20060801, end: 20060801
  3. OXALIPLATIN [Suspect]
     Indication: LARGE INTESTINE CARCINOMA
     Route: 042
     Dates: start: 20060801, end: 20060801

REACTIONS (1)
  - CEREBRAL INFARCTION [None]
